FAERS Safety Report 23793780 (Version 1)
Quarter: 2024Q2

REPORT INFORMATION
  Report Type: Other
  Country: CN (occurrence: CN)
  Receive Date: 20240429
  Receipt Date: 20240429
  Transmission Date: 20240716
  Serious: Yes (Hospitalization)
  Sender: FDA-Public Use
  Company Number: CN-ASTELLAS-2024US012318

PATIENT
  Age: 77 Year
  Sex: Female
  Weight: 61 kg

DRUGS (2)
  1. PROGRAF [Suspect]
     Active Substance: TACROLIMUS
     Indication: Immunisation
     Route: 048
     Dates: end: 20240415
  2. PROGRAF [Suspect]
     Active Substance: TACROLIMUS
     Dosage: 0.5 MG, EVERY 12 HOURS
     Route: 048
     Dates: start: 20240419

REACTIONS (1)
  - Immunosuppressant drug level increased [Recovered/Resolved]

NARRATIVE: CASE EVENT DATE: 20240415
